FAERS Safety Report 6675403-5 (Version None)
Quarter: 2010Q2

REPORT INFORMATION
  Report Type: 
  Country: None (occurrence: None)
  Receive Date: 20100409
  Receipt Date: 20100401
  Transmission Date: 20101027
  Serious: Yes (Other)
  Sender: FDA-Public Use
  Company Number: GB-PFIZER INC-2010005208

PATIENT
  Age: 62 Year
  Sex: Male

DRUGS (3)
  1. ATORVASTATIN CALCIUM [Suspect]
     Indication: PULMONARY VASCULAR DISORDER
     Dosage: UNK
     Route: 048
     Dates: start: 20091201
  2. CLOPIDOGREL [Concomitant]
  3. OMEPRAZOLE [Concomitant]

REACTIONS (1)
  - MYOPATHY [None]
